FAERS Safety Report 23825294 (Version 1)
Quarter: 2024Q2

REPORT INFORMATION
  Report Type: Spontaneous
  Country: US (occurrence: None)
  Receive Date: 20240506
  Receipt Date: 20240506
  Transmission Date: 20240715
  Serious: Yes (Hospitalization)
  Sender: FDA-Public Use
  Company Number: None

PATIENT
  Sex: Male

DRUGS (4)
  1. INLYTA [Suspect]
     Active Substance: AXITINIB
     Dosage: FREQUENCY : TWICE A DAY;?
     Route: 048
     Dates: start: 202403
  2. ELIQUIS [Concomitant]
     Active Substance: APIXABAN
  3. HEPARIN [Concomitant]
     Active Substance: HEPARIN SODIUM
  4. KEYTRUDA [Concomitant]
     Active Substance: PEMBROLIZUMAB

REACTIONS (6)
  - Nausea [None]
  - Decreased appetite [None]
  - Dyspnoea [None]
  - Cough [None]
  - Thrombosis [None]
  - Pulmonary embolism [None]
